FAERS Safety Report 5717992-0 (Version None)
Quarter: 2008Q2

REPORT INFORMATION
  Report Type: 
  Country: None (occurrence: None)
  Receive Date: 20080425
  Receipt Date: 20080423
  Transmission Date: 20081010
  Serious: Yes (Other)
  Sender: FDA-Public Use
  Company Number: B0506365A

PATIENT
  Sex: Female

DRUGS (8)
  1. LAMICTAL [Suspect]
     Route: 065
     Dates: start: 20071101
  2. NORITREN [Concomitant]
     Indication: DEPRESSION
     Dosage: 125MG PER DAY
  3. ZELDOX [Concomitant]
     Dosage: 200MG PER DAY
     Route: 065
  4. TRUXAL [Concomitant]
     Indication: SEDATION
     Dosage: 100MG PER DAY
     Route: 065
  5. ZOLPIDEM TARTRATE [Concomitant]
     Indication: INSOMNIA
     Dosage: 10MG PER DAY
  6. FERRO DURETTER [Concomitant]
     Dosage: 100MG TWICE PER DAY
     Route: 065
  7. DIANE MITE [Concomitant]
     Indication: CONTRACEPTION
     Route: 065
  8. UNKNOWN DRUG [Concomitant]
     Dosage: 50MG PER DAY

REACTIONS (3)
  - BLISTER [None]
  - PUSTULAR PSORIASIS [None]
  - RASH [None]
